FAERS Safety Report 8365521-8 (Version None)
Quarter: 2012Q2

REPORT INFORMATION
  Report Type: 
  Country: None (occurrence: None)
  Receive Date: 20120516
  Receipt Date: 20120508
  Transmission Date: 20120825
  Serious: No
  Sender: FDA-Public Use
  Company Number: US-B.I. PHARMACEUTICALS,INC./RIDGEFIELD-2012-BP-10398BP

PATIENT
  Sex: Male

DRUGS (3)
  1. DOXAZOSIN MESYLATE [Concomitant]
     Indication: HYPERTENSION
     Route: 048
     Dates: start: 20090101
  2. AMIODARONE HCL [Concomitant]
     Indication: CARDIAC DISORDER
     Route: 048
     Dates: start: 20080101
  3. DULCOLAX [Suspect]
     Indication: CONSTIPATION
     Dosage: 200 MG
     Route: 048
     Dates: start: 20120505

REACTIONS (1)
  - CONSTIPATION [None]
